FAERS Safety Report 9528094 (Version 1)
Quarter: 2013Q3

REPORT INFORMATION
  Report Type: Spontaneous
  Country: AU (occurrence: None)
  Receive Date: 20130913
  Receipt Date: 20130913
  Transmission Date: 20140515
  Serious: Yes (Hospitalization)
  Sender: FDA-Public Use
  Company Number: 2013P1019160

PATIENT
  Age: 72 Year
  Sex: Female

DRUGS (6)
  1. LITHIUM [Suspect]
     Indication: SCHIZOAFFECTIVE DISORDER
     Dates: start: 1993, end: 2005
  2. ARIPIMAZOLE [Concomitant]
  3. VALPROATE SODIUM [Concomitant]
  4. ATORVASTATIN [Concomitant]
  5. THYROXIN [Concomitant]
  6. TELMISARTAM /HYDROCHLOROTHIAZIDE [Concomitant]

REACTIONS (7)
  - Type 2 diabetes mellitus [None]
  - Renal failure chronic [None]
  - Tubulointerstitial nephritis [None]
  - Hypertension [None]
  - Renal cyst [None]
  - Clear cell renal cell carcinoma [None]
  - Cystitis noninfective [None]
